FAERS Safety Report 21414100 (Version 1)
Quarter: 2022Q4

REPORT INFORMATION
  Report Type: Spontaneous
  Country: US (occurrence: US)
  Receive Date: 20221006
  Receipt Date: 20221006
  Transmission Date: 20230112
  Serious: No
  Sender: FDA-Public Use
  Company Number: US-ALLERGAN-2225635US

PATIENT
  Sex: Male

DRUGS (1)
  1. QULIPTA [Suspect]
     Active Substance: ATOGEPANT
     Indication: Product used for unknown indication
     Dosage: UNK

REACTIONS (7)
  - Sleep disorder [Unknown]
  - Depression [Unknown]
  - Asthenia [Unknown]
  - Dry eye [Unknown]
  - Ocular hyperaemia [Unknown]
  - Fatigue [Unknown]
  - Headache [Unknown]
